FAERS Safety Report 10017823 (Version 1)
Quarter: 2014Q1

REPORT INFORMATION
  Report Type: Spontaneous
  Country: JP (occurrence: JP)
  Receive Date: 20140318
  Receipt Date: 20140318
  Transmission Date: 20141002
  Serious: Yes (Other)
  Sender: FDA-Public Use
  Company Number: JP-ASTELLAS-2014JP002272

PATIENT
  Age: 60 Year
  Sex: Female

DRUGS (14)
  1. PROGRAF [Suspect]
     Indication: PROPHYLAXIS AGAINST GRAFT VERSUS HOST DISEASE
     Route: 065
  2. FLUDARABINE [Concomitant]
     Indication: PREMEDICATION
     Dosage: UNK
     Route: 065
     Dates: start: 201304
  3. FLUDARABINE [Concomitant]
     Dosage: 30 MG/M2, UNKNOWN/D
     Route: 065
  4. FLUDARABINE [Concomitant]
     Route: 065
  5. MELPHALAN [Concomitant]
     Indication: PREMEDICATION
     Dosage: UNK
     Route: 065
     Dates: start: 201304
  6. MELPHALAN [Concomitant]
     Route: 065
  7. CYCLOSPORIN A [Concomitant]
     Indication: PROPHYLAXIS AGAINST GRAFT VERSUS HOST DISEASE
     Route: 065
  8. CYCLOSPORIN A [Concomitant]
     Route: 065
  9. METHOTREXATE [Concomitant]
     Indication: PROPHYLAXIS AGAINST GRAFT VERSUS HOST DISEASE
     Route: 065
  10. METHOTREXATE [Concomitant]
     Route: 065
  11. CYCLOPHOSPHAMIDE [Concomitant]
     Indication: PREMEDICATION
     Route: 065
  12. MYCOPHENOLATE MOFETIL [Concomitant]
     Indication: PROPHYLAXIS AGAINST GRAFT VERSUS HOST DISEASE
     Dosage: 1500 MG, UNKNOWN/D
     Route: 065
  13. METHYLPREDNISOLONE [Concomitant]
     Indication: PRE-ENGRAFTMENT IMMUNE REACTION
     Route: 065
  14. ANTITHYMOCYTE IMMUNOGLOBULIN [Concomitant]
     Indication: PREMEDICATION
     Dosage: 2 MG/KG, UNKNOWN/D
     Route: 065

REACTIONS (2)
  - Drug ineffective [Unknown]
  - Acute graft versus host disease [Recovering/Resolving]
